FAERS Safety Report 16129603 (Version 1)
Quarter: 2019Q1

REPORT INFORMATION
  Report Type: Spontaneous
  Country: GB (occurrence: GB)
  Receive Date: 20190328
  Receipt Date: 20190328
  Transmission Date: 20190418
  Serious: Yes (Life-Threatening, Hospitalization, Disabling, Other)
  Sender: FDA-Public Use
  Company Number: PHHY2019GB070397

PATIENT
  Age: 35 Year
  Sex: Female
  Weight: 13.2 kg

DRUGS (1)
  1. AZITHROMYCIN ANHYDROUS. [Suspect]
     Active Substance: AZITHROMYCIN ANHYDROUS
     Indication: CHLAMYDIA TEST POSITIVE
     Dosage: 2 OT, QD
     Route: 048
     Dates: start: 20190228

REACTIONS (2)
  - Psychotic disorder [Not Recovered/Not Resolved]
  - Suicide attempt [Unknown]

NARRATIVE: CASE EVENT DATE: 20190301
